FAERS Safety Report 5604087-X (Version None)
Quarter: 2008Q1

REPORT INFORMATION
  Report Type: 
  Country: None (occurrence: None)
  Receive Date: 20080123
  Receipt Date: 20080123
  Transmission Date: 20080703
  Serious: Yes (Other)
  Sender: FDA-Public Use
  Company Number: None

PATIENT
  Age: 55 Year
  Sex: Female
  Weight: 47.6277 kg

DRUGS (2)
  1. PREDNISONE [Suspect]
     Indication: ADRENAL INSUFFICIENCY
     Dosage: 4 MG  ONCE DAILY  PO
     Route: 048
  2. PREDNISONE [Suspect]
     Indication: ASTHMA
     Dosage: 4 MG  ONCE DAILY  PO
     Route: 048

REACTIONS (7)
  - ADRENAL DISORDER [None]
  - AGGRESSION [None]
  - CONDITION AGGRAVATED [None]
  - ENERGY INCREASED [None]
  - INCREASED APPETITE [None]
  - PHARMACEUTICAL PRODUCT COMPLAINT [None]
  - WEIGHT INCREASED [None]
